FAERS Safety Report 12531991 (Version 1)
Quarter: 2016Q3

REPORT INFORMATION
  Report Type: Spontaneous
  Country: JP (occurrence: JP)
  Receive Date: 20160706
  Receipt Date: 20160706
  Transmission Date: 20161109
  Serious: Yes (Death)
  Sender: FDA-Public Use
  Company Number: JP-MALLINCKRODT-T201602809

PATIENT
  Age: 54 Year
  Sex: Male
  Weight: 68 kg

DRUGS (16)
  1. LOXONIN [Concomitant]
     Active Substance: LOXOPROFEN SODIUM
     Indication: ANALGESIC THERAPY
     Dosage: 180 MG
     Route: 048
     Dates: end: 20151222
  2. REBAMIPIDE [Concomitant]
     Active Substance: REBAMIPIDE
     Dosage: 300MG
     Route: 048
     Dates: end: 20160215
  3. TRANSAMIN [Concomitant]
     Active Substance: TRANEXAMIC ACID
     Dosage: 750 MG
     Route: 048
     Dates: end: 20160206
  4. RINDERON V [Concomitant]
     Active Substance: BETAMETHASONE VALERATE
     Indication: ANALGESIC THERAPY
     Dosage: 1.0MG
     Route: 048
     Dates: end: 20160215
  5. CRAVIT [Concomitant]
     Active Substance: LEVOFLOXACIN
     Dosage: 500MG
     Route: 048
     Dates: start: 20160202, end: 20160205
  6. CELECOX [Concomitant]
     Active Substance: CELECOXIB
     Indication: ANALGESIC THERAPY
     Dosage: 200MG
     Route: 048
     Dates: start: 20151222, end: 20160215
  7. METHADONE [Suspect]
     Active Substance: METHADONE HYDROCHLORIDE
     Indication: CANCER PAIN
     Dosage: 40 MG, (80 MG DAILY DOSE)
     Route: 048
     Dates: start: 20151102, end: 20151222
  8. CRAVIT [Concomitant]
     Active Substance: LEVOFLOXACIN
     Dosage: 500MG
     Route: 048
     Dates: start: 20160108, end: 20160117
  9. MAGMITT [Concomitant]
     Active Substance: MAGNESIUM OXIDE
     Dosage: 1000MG
     Route: 048
     Dates: start: 20160210, end: 20160215
  10. LYRICA [Concomitant]
     Active Substance: PREGABALIN
     Indication: ANALGESIC THERAPY
     Dosage: 300 MG
     Route: 048
     Dates: end: 20160215
  11. METHADONE [Suspect]
     Active Substance: METHADONE HYDROCHLORIDE
     Dosage: 60 MG, (120MG DAILY DOSE)
     Route: 048
     Dates: start: 20160109, end: 20160215
  12. CALONAL [Concomitant]
     Active Substance: ACETAMINOPHEN
     Indication: ANALGESIC THERAPY
     Dosage: 2000MG
     Route: 048
     Dates: end: 20160215
  13. NORITREN [Concomitant]
     Active Substance: NORTRIPTYLINE HYDROCHLORIDE
     Indication: ANALGESIC THERAPY
     Dosage: 10MG
     Route: 048
     Dates: start: 20151222, end: 20160208
  14. METHADONE [Suspect]
     Active Substance: METHADONE HYDROCHLORIDE
     Dosage: 50 MG, (100 MG DAILY DOSE)
     Route: 048
     Dates: start: 20151223, end: 20160108
  15. OXINORM [Concomitant]
     Active Substance: OXYCODONE HYDROCHLORIDE
     Indication: ANALGESIC THERAPY
     Dosage: 40MG
     Route: 048
     Dates: end: 20160215
  16. FERRUM [Concomitant]
     Active Substance: FERROUS FUMARATE
     Dosage: 100MG
     Route: 048
     Dates: start: 20160122, end: 20160205

REACTIONS (1)
  - Rectal cancer [Fatal]

NARRATIVE: CASE EVENT DATE: 20160215
